FAERS Safety Report 7328838-1 (Version None)
Quarter: 2011Q1

REPORT INFORMATION
  Report Type: 
  Country: None (occurrence: None)
  Receive Date: 20110225
  Receipt Date: 20110225
  Transmission Date: 20110831
  Serious: Yes (Life-Threatening)
  Sender: FDA-Public Use
  Company Number: None

PATIENT
  Age: 52 Year
  Sex: Female
  Weight: 52.1637 kg

DRUGS (1)
  1. LEVAQUIN [Suspect]
     Indication: PNEUMONIA
     Dosage: 500MG 1 A DAY PO
     Route: 048
     Dates: start: 20081201, end: 20081210

REACTIONS (13)
  - VOMITING [None]
  - MUSCLE SPASMS [None]
  - DIZZINESS [None]
  - VISION BLURRED [None]
  - TREMOR [None]
  - ARTHROPATHY [None]
  - FEELING ABNORMAL [None]
  - CONFUSIONAL STATE [None]
  - OBSESSIVE THOUGHTS [None]
  - BONE PAIN [None]
  - HEAD TITUBATION [None]
  - INSOMNIA [None]
  - NIGHTMARE [None]
